FAERS Safety Report 15244684 (Version 1)
Quarter: 2018Q3

REPORT INFORMATION
  Report Type: Spontaneous
  Country: US (occurrence: US)
  Receive Date: 20180806
  Receipt Date: 20180806
  Transmission Date: 20181010
  Serious: No
  Sender: FDA-Public Use
  Company Number: US-SA-2018SA212999

PATIENT
  Age: 76 Year
  Sex: Female

DRUGS (1)
  1. ALLEGRA ALLERGY [Suspect]
     Active Substance: FEXOFENADINE HYDROCHLORIDE
     Indication: CONJUNCTIVAL HYPERAEMIA
     Dosage: 180 MG
     Route: 065
     Dates: start: 20180730, end: 20180801

REACTIONS (1)
  - Urticaria [Recovered/Resolved]
